FAERS Safety Report 21770021 (Version 1)
Quarter: 2022Q4

REPORT INFORMATION
  Report Type: Spontaneous
  Country: FR (occurrence: FR)
  Receive Date: 20221223
  Receipt Date: 20221223
  Transmission Date: 20230112
  Serious: Yes (Other)
  Sender: FDA-Public Use
  Company Number: None

PATIENT
  Age: 60 Year
  Sex: Male

DRUGS (3)
  1. BUPRENORPHINE [Suspect]
     Active Substance: BUPRENORPHINE
     Route: 055
  2. BENZOYLECGONINE [Suspect]
     Active Substance: BENZOYLECGONINE
     Route: 055
  3. COCAINE [Suspect]
     Active Substance: COCAINE
     Route: 055

REACTIONS (5)
  - Nausea [Recovered/Resolved]
  - Psychiatric decompensation [Not Recovered/Not Resolved]
  - Drug abuse [Not Recovered/Not Resolved]
  - Tinnitus [Recovered/Resolved]
  - Intentional product use issue [Not Recovered/Not Resolved]

NARRATIVE: CASE EVENT DATE: 20221001
